FAERS Safety Report 4973147-9 (Version None)
Quarter: 2006Q2

REPORT INFORMATION
  Report Type: 
  Country: None (occurrence: None)
  Receive Date: 20060414
  Receipt Date: 20050921
  Transmission Date: 20061013
  Serious: Yes (Hospitalization, Other)
  Sender: FDA-Public Use
  Company Number: US-MERCK-0509USA03252

PATIENT
  Age: 75 Year
  Sex: Male
  Weight: 120 kg

DRUGS (2)
  1. VIOXX [Suspect]
     Indication: ARTHRITIS
     Route: 048
     Dates: start: 20010201, end: 20040701
  2. PROCARDIA [Concomitant]
     Route: 065

REACTIONS (36)
  - ACCELERATED HYPERTENSION [None]
  - ANGINA PECTORIS [None]
  - ANGINA UNSTABLE [None]
  - AORTIC ANEURYSM [None]
  - ARTERIOSCLEROSIS [None]
  - ATRIOVENTRICULAR BLOCK FIRST DEGREE [None]
  - AZOTAEMIA [None]
  - BRADYCARDIA [None]
  - CALCULUS URINARY [None]
  - CARDIAC DISORDER [None]
  - CHRONIC OBSTRUCTIVE PULMONARY DISEASE [None]
  - COLONIC POLYP [None]
  - CORONARY ARTERY DISEASE [None]
  - CORONARY ARTERY STENOSIS [None]
  - CYST [None]
  - DYSPNOEA EXERTIONAL [None]
  - FEELING JITTERY [None]
  - HYPERHIDROSIS [None]
  - HYPERTENSION [None]
  - HYPERTENSIVE CRISIS [None]
  - INSULIN RESISTANT DIABETES [None]
  - ISCHAEMIC ULCER [None]
  - LOSS OF CONSCIOUSNESS [None]
  - MYOCARDIAL INFARCTION [None]
  - MYOCARDIAL ISCHAEMIA [None]
  - NERVOUSNESS [None]
  - OEDEMA PERIPHERAL [None]
  - ORTHOPNOEA [None]
  - PERIPHERAL VASCULAR DISORDER [None]
  - PROSTATE CANCER [None]
  - RENAL CYST [None]
  - RENAL FAILURE CHRONIC [None]
  - SYNCOPE [None]
  - SYNCOPE VASOVAGAL [None]
  - TREATMENT NONCOMPLIANCE [None]
  - VENTRICULAR HYPERTROPHY [None]
